FAERS Safety Report 5793391-0 (Version None)
Quarter: 2008Q2

REPORT INFORMATION
  Report Type: 
  Country: None (occurrence: None)
  Receive Date: 20080627
  Receipt Date: 20080619
  Transmission Date: 20081010
  Serious: Yes (Life-Threatening)
  Sender: FDA-Public Use
  Company Number: GB-ROCHE-568098

PATIENT
  Sex: Male
  Weight: 87 kg

DRUGS (19)
  1. ORLISTAT [Suspect]
     Indication: OBESITY
     Route: 048
     Dates: start: 20031030, end: 20080515
  2. FOLIC ACID [Concomitant]
     Route: 048
     Dates: start: 20030318
  3. ADCAL D3 [Concomitant]
     Indication: OSTEOPOROSIS
     Route: 048
     Dates: start: 20080614
  4. ADCAL D3 [Concomitant]
     Route: 048
     Dates: start: 20080614
  5. MOVICOL [Concomitant]
     Indication: CONSTIPATION
     Route: 048
     Dates: start: 20080523
  6. MOVICOL [Concomitant]
     Route: 048
     Dates: start: 20080523
  7. CEPHALEXIN [Concomitant]
     Route: 048
     Dates: start: 20070720
  8. OMEPRAZOLE [Concomitant]
     Indication: ILL-DEFINED DISORDER
     Route: 048
     Dates: start: 20051108
  9. CLOPIDOGREL [Concomitant]
     Route: 048
     Dates: start: 20070514
  10. AMLODIPINE [Concomitant]
     Route: 048
     Dates: start: 20050613
  11. BISOPROLOL FUMARATE [Concomitant]
     Dosage: DOSE REPORTED AS 2.5
     Route: 048
     Dates: start: 20080102
  12. BUMETANIDE [Concomitant]
     Route: 048
     Dates: start: 20040430
  13. LEVOTHYROXINE SODIUM [Concomitant]
     Indication: HYPOTHYROIDISM
     Route: 048
     Dates: start: 20060322
  14. IRBESARTAN [Concomitant]
     Indication: RENAL FAILURE
     Route: 048
     Dates: start: 20021017
  15. AMITRIPTYLINE HCL [Concomitant]
     Indication: ANXIETY
     Route: 048
     Dates: start: 20010803
  16. SIMVASTATIN [Concomitant]
     Indication: MYOCARDIAL INFARCTION
     Route: 048
     Dates: start: 19990101, end: 20080614
  17. OMACOR [Concomitant]
     Indication: MYOCARDIAL INFARCTION
     Dosage: DOSE REPORTED AS 1000
     Route: 048
     Dates: start: 20030407, end: 20080614
  18. ALENDRONATE SODIUM [Concomitant]
     Indication: OSTEOPOROSIS
     Dosage: REPORTED AS ALENDRONATE
     Route: 048
     Dates: start: 20030210, end: 20080614
  19. NIASPAN [Concomitant]
     Indication: LIPIDS
     Route: 048
     Dates: start: 20050223, end: 20080614

REACTIONS (1)
  - GALLBLADDER CANCER [None]
